FAERS Safety Report 9474151 (Version 1)
Quarter: 2013Q3

REPORT INFORMATION
  Report Type: Spontaneous
  Country: US (occurrence: None)
  Receive Date: 20130820
  Receipt Date: 20130820
  Transmission Date: 20140515
  Serious: Yes (Hospitalization)
  Sender: FDA-Public Use
  Company Number: VAL_02690_2013

PATIENT
  Age: 66 Year
  Sex: Male

DRUGS (9)
  1. METOPROLOL [Suspect]
     Indication: BLOOD PRESSURE
  2. NEORAL [Suspect]
     Indication: LIVER TRANSPLANT
  3. OXCARBAZEPINE [Suspect]
     Indication: PRODUCT USED FOR UNKNOWN INDICATION
     Dosage: (DF)
  4. LYRICA [Suspect]
     Indication: NEUROPATHY PERIPHERAL
     Dates: start: 2010
  5. PROCARDIA [Suspect]
     Indication: PRODUCT USED FOR UNKNOWN INDICATION
     Dosage: (DF)
  6. CELLCEPT /01275102/ [Suspect]
     Indication: PRODUCT USED FOR UNKNOWN INDICATION
  7. COUMADIN /00014802/ [Suspect]
     Indication: PRODUCT USED FOR UNKNOWN INDICATION
  8. CELEXA /00582602/ [Suspect]
  9. RENVELA [Suspect]
     Indication: PRODUCT USED FOR UNKNOWN INDICATION

REACTIONS (5)
  - Renal failure [None]
  - Pain in extremity [None]
  - Fall [None]
  - Dialysis [None]
  - Hypersomnia [None]
